FAERS Safety Report 19571410 (Version 1)
Quarter: 2021Q3

REPORT INFORMATION
  Report Type: Report from Study
  Country: IN (occurrence: IN)
  Receive Date: 20210715
  Receipt Date: 20210715
  Transmission Date: 20211014
  Serious: Yes (Hospitalization)
  Sender: FDA-Public Use
  Company Number: NVSC2021IN156820

PATIENT
  Age: 81 Year
  Sex: Female

DRUGS (1)
  1. VYMADA [Suspect]
     Active Substance: SACUBITRIL\VALSARTAN
     Indication: CARDIAC FAILURE CHRONIC
     Dosage: 50 MG, BID
     Route: 048
     Dates: start: 20190514

REACTIONS (3)
  - Platelet count decreased [Recovered/Resolved]
  - Alopecia [Unknown]
  - COVID-19 [Unknown]

NARRATIVE: CASE EVENT DATE: 20210220
